FAERS Safety Report 7599898-8 (Version None)
Quarter: 2011Q3

REPORT INFORMATION
  Report Type: 
  Country: None (occurrence: None)
  Receive Date: 20110711
  Receipt Date: 20110628
  Transmission Date: 20111222
  Serious: Yes (Hospitalization, Other)
  Sender: FDA-Public Use
  Company Number: IT-PAR PHARMACEUTICAL, INC-2011SCPR003092

PATIENT
  Age: 62 Year
  Sex: Female

DRUGS (3)
  1. VALPROATE SODIUM [Suspect]
     Indication: BIPOLAR I DISORDER
     Dosage: 500 MG, BID
     Route: 065
  2. GAMMA HYDROXYBUTYRIC ACID [Suspect]
     Indication: ALCOHOLISM
     Dosage: 3500 MG/DAY (46 MG/KG/DAY)
     Route: 065
  3. DISULFIRAM [Suspect]
     Indication: ALCOHOLISM
     Dosage: 400 MG, PER DAY
     Route: 065

REACTIONS (5)
  - NEUROTOXICITY [None]
  - PSYCHOTIC DISORDER [None]
  - DRUG INTERACTION [None]
  - EPILEPSY [None]
  - HYPOMANIA [None]
